FAERS Safety Report 6778974-3 (Version None)
Quarter: 2010Q2

REPORT INFORMATION
  Report Type: 
  Country: None (occurrence: None)
  Receive Date: 20100618
  Receipt Date: 20100607
  Transmission Date: 20101027
  Serious: Yes (Hospitalization)
  Sender: FDA-Public Use
  Company Number: FR-ELI_LILLY_AND_COMPANY-FR201004007304

PATIENT
  Sex: Male
  Weight: 82 kg

DRUGS (14)
  1. PEMETREXED [Suspect]
     Indication: NON-SMALL CELL LUNG CANCER
     Dosage: 965 MG, OTHER
     Route: 042
     Dates: start: 20100416
  2. CARBOPLATIN [Concomitant]
     Indication: NON-SMALL CELL LUNG CANCER
     Dosage: 304 MG, UNK
     Route: 042
     Dates: start: 20100416
  3. FOLIC ACID [Concomitant]
     Indication: PROPHYLAXIS
     Dates: start: 20100409, end: 20100423
  4. VITAMIN B-12 [Concomitant]
     Indication: PROPHYLAXIS
     Dosage: UNK, UNK
     Dates: start: 20100409, end: 20100409
  5. DEXAMETHASONE [Concomitant]
     Indication: PROPHYLAXIS
     Dosage: UNK, UNK
     Dates: start: 20100416, end: 20100416
  6. OXYCODONE [Concomitant]
     Indication: PAIN
     Dosage: UNK, UNK
     Dates: start: 20100408
  7. PREDNISOLONE [Concomitant]
     Indication: ANTIEMETIC SUPPORTIVE CARE
     Dates: start: 20100417, end: 20100419
  8. METOCLOPRAMIDE [Concomitant]
     Indication: ANTIEMETIC SUPPORTIVE CARE
     Dates: start: 20100417, end: 20100419
  9. ATENOLOL [Concomitant]
     Indication: CORONARY ARTERY DISEASE
     Dosage: UNK, UNK
     Dates: start: 20080101
  10. ROSUVASTATIN [Concomitant]
     Indication: CORONARY ARTERY DISEASE
     Dosage: UNK, UNK
     Dates: start: 20080101
  11. INSULIN [Concomitant]
     Indication: DIABETES MELLITUS
     Dosage: UNK, UNK
     Dates: start: 20100108
  12. ESOMEPRAZOLE [Concomitant]
     Indication: PROPHYLAXIS AGAINST GASTROINTESTINAL ULCER
     Dates: start: 20100414, end: 20100421
  13. ASPIRIN [Concomitant]
     Indication: CORONARY ARTERY DISEASE
     Dosage: UNK, UNK
     Dates: start: 20080101
  14. ZOLPIDEM [Concomitant]
     Indication: DRUG THERAPY
     Dosage: UNK, UNK
     Dates: start: 20100408

REACTIONS (3)
  - DIARRHOEA [None]
  - MUSCULAR WEAKNESS [None]
  - PAIN [None]
